FAERS Safety Report 4461028-9 (Version None)
Quarter: 2004Q3

REPORT INFORMATION
  Report Type: 
  Country: None (occurrence: None)
  Receive Date: 20040928
  Receipt Date: 20040630
  Transmission Date: 20050211
  Serious: No
  Sender: FDA-Public Use
  Company Number: US-GLAXOSMITHKLINE-A0516627A

PATIENT
  Sex: Female

DRUGS (5)
  1. ADVAIR DISKUS 100/50 [Suspect]
     Dosage: 1PUFF PER DAY
     Route: 055
  2. PRILOSEC [Concomitant]
  3. ACTONEL [Concomitant]
  4. PLENDIL [Concomitant]
  5. DYAZIDE [Concomitant]

REACTIONS (1)
  - APTYALISM [None]
